FAERS Safety Report 8195877-0 (Version None)
Quarter: 2012Q1

REPORT INFORMATION
  Report Type: 
  Country: None (occurrence: None)
  Receive Date: 20120308
  Receipt Date: 20120229
  Transmission Date: 20120608
  Serious: Yes (Hospitalization)
  Sender: FDA-Public Use
  Company Number: JP-FRI-1000024525

PATIENT
  Sex: Male
  Weight: 50 kg

DRUGS (6)
  1. MEMANTINE [Suspect]
     Indication: DEMENTIA
  2. TETRAMIDE [Concomitant]
     Indication: DEPRESSION
     Dosage: 30 MG
     Route: 048
  3. PURSENNID [Concomitant]
     Indication: CONSTIPATION
     Dosage: 24 MG
     Route: 048
  4. SULPIRIDE [Concomitant]
     Indication: DEPRESSION
     Dosage: 100 MG
     Route: 048
  5. ARICEPT [Concomitant]
     Indication: DEMENTIA
     Dosage: 5 MG
     Route: 048
  6. MEMANTINE [Suspect]
     Indication: DEMENTIA ALZHEIMER'S TYPE
     Dosage: 5 MG
     Route: 048
     Dates: start: 20110705, end: 20110713

REACTIONS (3)
  - ABULIA [None]
  - GUILLAIN-BARRE SYNDROME [None]
  - DECREASED APPETITE [None]
